FAERS Safety Report 4667867-3 (Version None)
Quarter: 2005Q2

REPORT INFORMATION
  Report Type: 
  Country: None (occurrence: None)
  Receive Date: 20050520
  Receipt Date: 20050408
  Transmission Date: 20051028
  Serious: Yes (Death)
  Sender: FDA-Public Use
  Company Number: US-ROCHE-401564

PATIENT
  Age: 52 Year
  Sex: Male
  Weight: 55.6 kg

DRUGS (5)
  1. PEGASYS [Suspect]
     Indication: HEPATITIS C
     Route: 058
     Dates: start: 20041230, end: 20050327
  2. COPEGUS [Suspect]
     Indication: HEPATITIS C
     Dosage: 400MG IN THE MORNING, 400MG IN THE EVENING
     Route: 048
     Dates: start: 20041230, end: 20050327
  3. VALIUM [Suspect]
     Indication: DRUG USE FOR UNKNOWN INDICATION
     Route: 048
  4. DARVON [Suspect]
     Indication: DRUG USE FOR UNKNOWN INDICATION
     Route: 048
  5. VICODIN [Concomitant]
     Route: 048

REACTIONS (6)
  - ACCIDENTAL DEATH [None]
  - CORONARY ARTERY ATHEROSCLEROSIS [None]
  - DRUG TOXICITY [None]
  - HYPERTENSIVE HEART DISEASE [None]
  - PNEUMONIA [None]
  - VENTRICULAR HYPERTROPHY [None]
